FAERS Safety Report 6437072-9 (Version None)
Quarter: 2009Q4

REPORT INFORMATION
  Report Type: 
  Country: None (occurrence: None)
  Receive Date: 20091110
  Receipt Date: 20071106
  Transmission Date: 20100525
  Serious: No
  Sender: FDA-Public Use
  Company Number: AEUSA200700261

PATIENT
  Age: 56 Year
  Sex: Female
  Weight: 111.1313 kg

DRUGS (1)
  1. GAMUNEX [Suspect]
     Indication: IMMUNOGLOBULINS ABNORMAL
     Dosage: 40 MG;QW;IV
     Route: 042
     Dates: start: 20060101, end: 20070920

REACTIONS (2)
  - INFUSION RELATED REACTION [None]
  - URTICARIA [None]
